FAERS Safety Report 4486459-2 (Version None)
Quarter: 2004Q4

REPORT INFORMATION
  Report Type: 
  Country: None (occurrence: None)
  Receive Date: 20041022
  Receipt Date: 20041006
  Transmission Date: 20050328
  Serious: Yes (Death)
  Sender: FDA-Public Use
  Company Number: 2004-BP-0949BP(0)

PATIENT
  Sex: Male

DRUGS (2)
  1. SPIRIVA [Suspect]
     Dosage: (18 MCG), IH
     Route: 055
  2. ATROVENT INHALATION AEROSOL (IPRATROPIOUM BROMIDE) [Suspect]
     Dosage: IH
     Route: 055

REACTIONS (1)
  - EPISTAXIS [None]
